FAERS Safety Report 15606756 (Version 1)
Quarter: 2018Q4

REPORT INFORMATION
  Report Type: Spontaneous
  Country: US (occurrence: US)
  Receive Date: 20181111
  Receipt Date: 20181111
  Transmission Date: 20190205
  Serious: Yes (Other)
  Sender: FDA-Public Use
  Company Number: None

PATIENT
  Age: 45 Year
  Sex: Male
  Weight: 92.25 kg

DRUGS (13)
  1. LORAZEPAM 1MG [Suspect]
     Active Substance: LORAZEPAM
     Indication: PANIC DISORDER
     Dosage: ?          QUANTITY:2 TABLET(S);?
     Route: 048
     Dates: start: 20180819, end: 20180820
  2. COLACE [Concomitant]
     Active Substance: DOCUSATE SODIUM
  3. PRILOSEC [Concomitant]
     Active Substance: OMEPRAZOLE MAGNESIUM
  4. CRESTOR [Concomitant]
     Active Substance: ROSUVASTATIN CALCIUM
  5. LUNESTA [Concomitant]
     Active Substance: ESZOPICLONE
  6. RHINOCORT [Concomitant]
     Active Substance: BUDESONIDE
  7. RESTASIS [Concomitant]
     Active Substance: CYCLOSPORINE
  8. SENOKOT [Concomitant]
     Active Substance: SENNOSIDES
  9. ZINC. [Concomitant]
     Active Substance: ZINC
  10. LORAZEPAM 1MG [Suspect]
     Active Substance: LORAZEPAM
     Indication: OBSESSIVE-COMPULSIVE DISORDER
     Dosage: ?          QUANTITY:2 TABLET(S);?
     Route: 048
     Dates: start: 20180819, end: 20180820
  11. VITAMIN D3 [Concomitant]
     Active Substance: CHOLECALCIFEROL
  12. VITAMIN B6 [Concomitant]
     Active Substance: PYRIDOXINE HYDROCHLORIDE
  13. LORAZEPAM 1MG [Suspect]
     Active Substance: LORAZEPAM
     Indication: ANXIETY DISORDER
     Dosage: ?          QUANTITY:2 TABLET(S);?
     Route: 048
     Dates: start: 20180819, end: 20180820

REACTIONS (3)
  - Product substitution issue [None]
  - Product complaint [None]
  - Drug ineffective [None]

NARRATIVE: CASE EVENT DATE: 20180819
